FAERS Safety Report 9527826 (Version 1)
Quarter: 2013Q1

REPORT INFORMATION
  Report Type: Spontaneous
  Country: US (occurrence: None)
  Receive Date: 20130314
  Receipt Date: 20130314
  Transmission Date: 20140127
  Serious: No
  Sender: FDA-Public Use
  Company Number: 1301USA000585

PATIENT
  Age: 19 Year
  Sex: Female

DRUGS (3)
  1. BOCEPREVIR [Suspect]
     Indication: CHRONIC HEPATITIS C
     Dates: start: 201210
  2. RIBAVIRIN (RIBAVIRIN) CAPSULE [Suspect]
     Indication: CHRONIC HEPATITIS C
     Route: 048
     Dates: start: 20120922
  3. PEGASYS (PEGINTERFERON ALFA-2A) [Suspect]
     Indication: CHRONIC HEPATITIS C
     Route: 058
     Dates: start: 20120922

REACTIONS (3)
  - Red blood cell count decreased [None]
  - Platelet count decreased [None]
  - Menorrhagia [None]
